FAERS Safety Report 9441049 (Version 2)
Quarter: 2013Q3

REPORT INFORMATION
  Report Type: Spontaneous
  Country: DE (occurrence: DE)
  Receive Date: 20130805
  Receipt Date: 20130811
  Transmission Date: 20140515
  Serious: Yes (Other)
  Sender: FDA-Public Use
  Company Number: DE-009507513-1307DEU001515

PATIENT
  Age: 75 Year
  Sex: Female

DRUGS (2)
  1. THERAPY UNSPECIFIED [Suspect]
  2. ALENDRONATE SODIUM [Suspect]
     Indication: OSTEOPOROSIS
     Dosage: 70 MG, QW
     Route: 048

REACTIONS (2)
  - Osteonecrosis of jaw [Unknown]
  - Osteoporotic fracture [Unknown]
